FAERS Safety Report 9224620 (Version 1)
Quarter: 2013Q1

REPORT INFORMATION
  Report Type: Spontaneous
  Country: US (occurrence: None)
  Receive Date: 20120917
  Receipt Date: 20120917
  Transmission Date: 20140127
  Serious: Yes (Other)
  Sender: FDA-Public Use
  Company Number: 1000030302

PATIENT
  Age: 33 Year
  Sex: Female

DRUGS (1)
  1. CELEXA [Suspect]

REACTIONS (3)
  - Diarrhoea [None]
  - Vomiting [None]
  - Retching [None]
